FAERS Safety Report 8960843 (Version 1)
Quarter: 2012Q4

REPORT INFORMATION
  Report Type: Spontaneous
  Country: US (occurrence: None)
  Receive Date: 20121211
  Receipt Date: 20121211
  Transmission Date: 20130627
  Serious: Yes (Other)
  Sender: FDA-Public Use
  Company Number: None

PATIENT
  Age: 59 Year
  Sex: Female
  Weight: 70.31 kg

DRUGS (1)
  1. EVISTA [Suspect]
     Indication: OSTEOPENIA
     Dosage: 13 tablets -every other d

REACTIONS (4)
  - Muscle spasms [None]
  - Movement disorder [None]
  - Hypoaesthesia [None]
  - Hypoaesthesia [None]
